FAERS Safety Report 6406228-3 (Version None)
Quarter: 2009Q4

REPORT INFORMATION
  Report Type: 
  Country: None (occurrence: None)
  Receive Date: 20091019
  Receipt Date: 20091005
  Transmission Date: 20100525
  Serious: Yes (Hospitalization, Other)
  Sender: FDA-Public Use
  Company Number: PHHY2009FR42982

PATIENT
  Age: 81 Year
  Sex: Female

DRUGS (1)
  1. COTAREG [Suspect]
     Indication: HYPERTENSION

REACTIONS (14)
  - APRAXIA [None]
  - CONFUSIONAL STATE [None]
  - DEHYDRATION [None]
  - DISORIENTATION [None]
  - DYSSTASIA [None]
  - FATIGUE [None]
  - HALLUCINATION, VISUAL [None]
  - HYPOKALAEMIA [None]
  - HYPONATRAEMIA [None]
  - INAPPROPRIATE ANTIDIURETIC HORMONE SECRETION [None]
  - LOSS OF CONSCIOUSNESS [None]
  - LOWER RESPIRATORY TRACT INFECTION [None]
  - MALAISE [None]
  - NERVOUS SYSTEM DISORDER [None]
